FAERS Safety Report 4344240-9 (Version None)
Quarter: 2004Q2

REPORT INFORMATION
  Report Type: 
  Country: None (occurrence: None)
  Receive Date: 20040419
  Receipt Date: 20040330
  Transmission Date: 20050107
  Serious: No
  Sender: FDA-Public Use
  Company Number: B0328472A

PATIENT
  Age: 39 Year
  Sex: Male

DRUGS (3)
  1. EPIVIR (FORMULATION UNKNOWN) (LAMIVUDINE) [Suspect]
     Indication: HIV INFECTION
  2. STAVUDINE (FORMULATION UNKNOWN) (STAVUDINE) [Suspect]
     Indication: HIV INFECTION
  3. INDINAVIR SULFATE (FORMULATION UNKNOWN) (INDINAVIR SULFATE) [Suspect]
     Indication: HIV INFECTION

REACTIONS (11)
  - BASEDOW'S DISEASE [None]
  - DIARRHOEA [None]
  - HYPERREFLEXIA [None]
  - IMMUNE RECONSTITUTION SYNDROME [None]
  - LETHARGY [None]
  - LYMPHADENOPATHY [None]
  - NAUSEA [None]
  - THYMUS DISORDER [None]
  - TREMOR [None]
  - VOMITING [None]
  - WEIGHT DECREASED [None]
